FAERS Safety Report 8854779 (Version 3)
Quarter: 2013Q1

REPORT INFORMATION
  Report Type: Spontaneous
  Country: US (occurrence: US)
  Receive Date: 20121023
  Receipt Date: 20130301
  Transmission Date: 20140127
  Serious: Yes (Other)
  Sender: FDA-Public Use
  Company Number: US-009507513-1209USA005394

PATIENT
  Sex: Male

DRUGS (3)
  1. PEG-INTRON [Suspect]
     Indication: HEPATITIS C
     Dosage: UNK
     Dates: start: 20120326, end: 20121215
  2. REBETOL [Suspect]
     Indication: HEPATITIS C
     Dosage: UNK
     Route: 048
     Dates: start: 20120326, end: 20121215
  3. VICTRELIS [Suspect]
     Indication: HEPATITIS C
     Dosage: UNK
     Route: 048
     Dates: start: 20120423, end: 20121023

REACTIONS (28)
  - Paranoia [Unknown]
  - Hallucination [Unknown]
  - Mental disorder [Unknown]
  - White blood cell count decreased [Unknown]
  - Confusional state [Unknown]
  - Confusional state [Unknown]
  - Memory impairment [Unknown]
  - Malaise [Unknown]
  - Panic disorder [Unknown]
  - Vision blurred [Unknown]
  - Eye disorder [Unknown]
  - Depression [Unknown]
  - Weight decreased [Unknown]
  - Anaemia [Unknown]
  - Fatigue [Unknown]
  - Red blood cell count decreased [Unknown]
  - Fatigue [Unknown]
  - Irritability [Unknown]
  - Insomnia [Unknown]
  - Insomnia [Unknown]
  - Irritability [Unknown]
  - Mental disorder [Unknown]
  - Insomnia [Unknown]
  - Fatigue [Unknown]
  - Anxiety [Unknown]
  - Nervousness [Unknown]
  - Pruritus [Recovering/Resolving]
  - Burning sensation [Unknown]
